FAERS Safety Report 8989359 (Version 2)
Quarter: 2013Q1

REPORT INFORMATION
  Report Type: Spontaneous
  Country: US (occurrence: US)
  Receive Date: 20121228
  Receipt Date: 20130315
  Transmission Date: 20140127
  Serious: Yes (Hospitalization)
  Sender: FDA-Public Use
  Company Number: US-BAYER-2012-135563

PATIENT
  Age: 19 Year
  Sex: Female
  Weight: 68.03 kg

DRUGS (14)
  1. YASMIN [Suspect]
     Indication: MENSTRUAL CYCLE MANAGEMENT
     Dosage: UNK
     Dates: start: 2003, end: 200511
  2. YASMIN [Suspect]
     Indication: ACNE
  3. YASMIN [Suspect]
     Indication: PREMENSTRUAL SYNDROME
  4. TRAMADOL [Concomitant]
     Dosage: UNK
  5. NEURONTIN [Concomitant]
  6. AYGSTIN [Concomitant]
  7. ABILIFY [Concomitant]
  8. HYDROCODONE [Concomitant]
     Indication: ANALGESIC THERAPY
     Dosage: UNK
     Dates: start: 200511, end: 2006
  9. LORATAB [Concomitant]
     Dosage: UNK
     Dates: start: 20051121
  10. RESCON [CHLORPHENAMINE MALEATE,HYOSCINE METHONITRATE,PHENYLPROPANO [Concomitant]
     Dosage: UNK
     Dates: start: 20051121
  11. ZIRTEC [Concomitant]
     Dosage: UNK
     Dates: start: 20051121
  12. FLEXERIL [Concomitant]
     Dosage: UNK
     Dates: start: 20051121
  13. NEUROTIN [Concomitant]
     Dosage: UNK
     Dates: start: 20051121
  14. LEXAPRO [Concomitant]
     Dosage: UNK
     Dates: start: 20051121

REACTIONS (8)
  - Deep vein thrombosis [Recovered/Resolved]
  - Post thrombotic syndrome [None]
  - Injury [Recovered/Resolved]
  - Pain [None]
  - Emotional distress [None]
  - Anxiety [None]
  - Pain [Recovered/Resolved]
  - Venous valve ruptured [None]
